FAERS Safety Report 24341826 (Version 1)
Quarter: 2024Q3

REPORT INFORMATION
  Report Type: Spontaneous
  Country: US (occurrence: US)
  Receive Date: 20240920
  Receipt Date: 20240920
  Transmission Date: 20241016
  Serious: Yes (Hospitalization)
  Sender: NOVO NORDISK
  Company Number: US-NOVOPROD-1282714

PATIENT
  Age: 51 Year
  Sex: Male

DRUGS (3)
  1. LEVEMIR [Suspect]
     Active Substance: INSULIN DETEMIR
     Indication: Type 1 diabetes mellitus
     Dosage: 95 IU (50 UNITS AT BREAKFAST 45 AT NIGHTIME)
     Route: 058
     Dates: start: 200911
  2. VICTOZA [Suspect]
     Active Substance: LIRAGLUTIDE
     Indication: Type 1 diabetes mellitus
     Dosage: 1.8MG ONCE DAILY
     Route: 058
     Dates: start: 2017
  3. NOVOLOG [Suspect]
     Active Substance: INSULIN ASPART
     Indication: Type 1 diabetes mellitus
     Dosage: STARTING ON 40 UNITS BUT USES A SLIDING SCALE
     Route: 058
     Dates: start: 2009

REACTIONS (9)
  - Dyspnoea [Recovered/Resolved]
  - Chronic obstructive pulmonary disease [Not Recovered/Not Resolved]
  - Blood glucose increased [Not Recovered/Not Resolved]
  - Localised infection [Recovered/Resolved]
  - Hypersensitivity [Not Recovered/Not Resolved]
  - Asthma [Not Recovered/Not Resolved]
  - Swelling [Not Recovered/Not Resolved]
  - Weight increased [Not Recovered/Not Resolved]
  - Off label use [Unknown]

NARRATIVE: CASE EVENT DATE: 20170101
